FAERS Safety Report 7097099-3 (Version None)
Quarter: 2010Q4

REPORT INFORMATION
  Report Type: 
  Country: None (occurrence: None)
  Receive Date: 20101111
  Receipt Date: 20101103
  Transmission Date: 20110411
  Serious: Yes (Other)
  Sender: FDA-Public Use
  Company Number: US-PFIZER INC-2010134035

PATIENT
  Sex: Male

DRUGS (1)
  1. LIPITOR [Suspect]
     Dosage: UNK

REACTIONS (9)
  - AMNESIA [None]
  - ARTHRALGIA [None]
  - BACK PAIN [None]
  - COGNITIVE DISORDER [None]
  - ILL-DEFINED DISORDER [None]
  - MUSCLE ATROPHY [None]
  - OEDEMA PERIPHERAL [None]
  - SPEECH DISORDER [None]
  - WEIGHT DECREASED [None]
